FAERS Safety Report 6496631-8 (Version None)
Quarter: 2009Q4

REPORT INFORMATION
  Report Type: 
  Country: None (occurrence: None)
  Receive Date: 20091210
  Receipt Date: 20091203
  Transmission Date: 20100525
  Serious: Yes (Other)
  Sender: FDA-Public Use
  Company Number: 2009SP033660

PATIENT
  Age: 37 Year
  Sex: Female
  Weight: 79 kg

DRUGS (4)
  1. IMPLANON [Suspect]
     Indication: DRUG USE FOR UNKNOWN INDICATION
     Dosage: 68 MG;
     Dates: start: 20091008, end: 20091027
  2. FLUOXETINE [Concomitant]
  3. MINI-PILL [Concomitant]
  4. CERAZETTE [Concomitant]

REACTIONS (13)
  - APPLICATION SITE INFLAMMATION [None]
  - APPLICATION SITE PRURITUS [None]
  - ASTHMA [None]
  - CONDITION AGGRAVATED [None]
  - COUGH [None]
  - EAR PRURITUS [None]
  - EYE PRURITUS [None]
  - FORMICATION [None]
  - GLOSSODYNIA [None]
  - RASH MACULAR [None]
  - SNEEZING [None]
  - SWOLLEN TONGUE [None]
  - WHEEZING [None]
